FAERS Safety Report 7690411-3 (Version None)
Quarter: 2011Q3

REPORT INFORMATION
  Report Type: 
  Country: None (occurrence: None)
  Receive Date: 20110818
  Receipt Date: 20110804
  Transmission Date: 20111222
  Serious: Yes (Hospitalization)
  Sender: FDA-Public Use
  Company Number: TW-BAYER-2011-068570

PATIENT
  Age: 55 Year
  Sex: Male
  Weight: 53 kg

DRUGS (15)
  1. DIMETICONE [Concomitant]
     Indication: ABDOMINAL DISTENSION
     Dosage: DAILY DOSE 120 MG
     Route: 048
     Dates: start: 20110801, end: 20110809
  2. TRAMADOL HCL [Concomitant]
     Indication: ABDOMINAL PAIN
     Dosage: DAILY DOSE 100 MG
     Route: 030
     Dates: start: 20110807, end: 20110809
  3. FRUCTOSE [Concomitant]
     Indication: DECREASED APPETITE
     Dosage: DAILY DOSE 500 ML
     Dates: start: 20110810
  4. AMINO ACIDS [Concomitant]
     Indication: DECREASED APPETITE
     Dosage: DAILY DOSE 50 ML
     Route: 042
     Dates: start: 20110805
  5. TRIAMCINOLONE/ANTIBIOTIC [GRAMICID,NEOMYC SULF,NYSTATIN,TRIAMCINOL [Concomitant]
     Indication: SKIN EXFOLIATION
     Dosage: 6 G TUBE PRN
     Route: 061
     Dates: start: 20110711
  6. RANITIDINE [Concomitant]
     Indication: PROPHYLAXIS
     Dosage: DAILY DOSE 450 MG
     Route: 048
     Dates: start: 20110804
  7. SORAFENIB (RAF KINASE INHIBITOR) [Suspect]
     Indication: HEPATIC NEOPLASM MALIGNANT
     Dosage: DAILY DOSE 800 MG
     Route: 048
     Dates: start: 20110620, end: 20110710
  8. METOCLOPRAMIDE [Concomitant]
     Indication: DECREASED APPETITE
     Dosage: DAILY DOSE 30 MG
     Route: 042
     Dates: start: 20110809
  9. SORAFENIB (RAF KINASE INHIBITOR) [Suspect]
     Dosage: DAILY DOSE 800 MG
     Route: 048
     Dates: start: 20110711, end: 20110731
  10. I.V. SOLUTIONS [Concomitant]
     Dosage: DAILY DOSE 800 ML
     Route: 042
     Dates: start: 20110810
  11. TRAMADOL HCL [Concomitant]
     Indication: MYALGIA
  12. MEDROXYPROGESTERONE ACETATE [Concomitant]
     Indication: DECREASED APPETITE
     Dosage: DAILY DOSE 1000 MG
     Route: 048
     Dates: start: 20110809
  13. I.V. SOLUTIONS [Concomitant]
     Indication: DECREASED APPETITE
     Dosage: DAILY DOSE 400 ML
     Route: 042
     Dates: start: 20110809, end: 20110809
  14. ULTRACET [Concomitant]
     Indication: MYALGIA
     Dosage: 1 TAB
     Route: 048
     Dates: start: 20110803
  15. ULTRACET [Concomitant]
     Indication: ABDOMINAL PAIN
     Dosage: 4/TAB
     Route: 048
     Dates: start: 20110805, end: 20110805

REACTIONS (2)
  - ASCITES [None]
  - HEPATIC FAILURE [None]
